FAERS Safety Report 11151368 (Version 2)
Quarter: 2015Q2

REPORT INFORMATION
  Report Type: Report from Study
  Country: BR (occurrence: BR)
  Receive Date: 20150601
  Receipt Date: 20150616
  Transmission Date: 20150821
  Serious: Yes (Other)
  Sender: FDA-Public Use
  Company Number: PHHY2015BR063434

PATIENT
  Age: 76 Year
  Sex: Female
  Weight: 73 kg

DRUGS (6)
  1. CALCIUM [Concomitant]
     Active Substance: CALCIUM
     Indication: OSTEOPOROSIS
     Dosage: 1 DF, QD (SACHET) (STARTED MORE THAN 5 YEARS)
     Route: 065
  2. PAMELOR [Concomitant]
     Active Substance: NORTRIPTYLINE HYDROCHLORIDE
     Indication: DEPRESSION
     Dosage: 1 DF, QD (STARTED 3 YEARS BACK)
     Route: 048
  3. PARATRAM [Concomitant]
     Indication: PAIN
     Dosage: 10 DRP, QD (STARTED 3 YEARS BACK)
     Route: 048
  4. DAFORIN [Concomitant]
     Indication: ANTIDEPRESSANT THERAPY
     Dosage: 1 DF, QD (STARTED 3 YEARS BACK)
     Route: 048
  5. ZOPIX [Concomitant]
     Indication: HALLUCINATION
     Dosage: 1 DF, QD (STARTED 1 AND A HALF YEAR BACK)
     Route: 048
  6. ACLASTA [Suspect]
     Active Substance: ZOLEDRONIC ACID
     Indication: OSTEOPOROSIS
     Dosage: 5 MG, (ONCE YEAR)
     Route: 042
     Dates: start: 201404

REACTIONS (1)
  - Femur fracture [Recovered/Resolved]

NARRATIVE: CASE EVENT DATE: 201406
